FAERS Safety Report 11813848 (Version 2)
Quarter: 2015Q4

REPORT INFORMATION
  Report Type: Spontaneous
  Country: US (occurrence: US)
  Receive Date: 20151209
  Receipt Date: 20151214
  Transmission Date: 20160305
  Serious: Yes (Hospitalization, Other)
  Sender: FDA-Public Use
  Company Number: US-PFIZER INC-2015431173

PATIENT
  Age: 43 Year
  Sex: Female
  Weight: 89 kg

DRUGS (3)
  1. LIBRAX [Concomitant]
     Active Substance: CHLORDIAZEPOXIDE HYDROCHLORIDE\CLIDINIUM BROMIDE
     Indication: IRRITABLE BOWEL SYNDROME
     Dosage: 1 MG, 3X/DAY
  2. PRISTIQ EXTENDED RELEASE [Suspect]
     Active Substance: DESVENLAFAXINE SUCCINATE
     Indication: ANXIETY
     Dosage: 50 MG, 1X/DAY
     Route: 048
  3. LIBRAX [Concomitant]
     Active Substance: CHLORDIAZEPOXIDE HYDROCHLORIDE\CLIDINIUM BROMIDE
     Indication: GASTROOESOPHAGEAL REFLUX DISEASE

REACTIONS (17)
  - Choking [Unknown]
  - Parosmia [Unknown]
  - Impaired driving ability [Unknown]
  - Stress [Unknown]
  - Rotator cuff syndrome [Unknown]
  - Blood pressure decreased [Unknown]
  - Head injury [Unknown]
  - Vocal cord disorder [Not Recovered/Not Resolved]
  - Fall [Unknown]
  - Obstructive airways disorder [Unknown]
  - Dyspnoea [Not Recovered/Not Resolved]
  - Condition aggravated [Unknown]
  - Throat irritation [Not Recovered/Not Resolved]
  - Seizure [Not Recovered/Not Resolved]
  - Aphasia [Unknown]
  - Cerebrospinal fluid retention [Not Recovered/Not Resolved]
  - Tendon rupture [Unknown]

NARRATIVE: CASE EVENT DATE: 2014
